FAERS Safety Report 5615655-3 (Version None)
Quarter: 2008Q1

REPORT INFORMATION
  Report Type: 
  Country: None (occurrence: None)
  Receive Date: 20080206
  Receipt Date: 20080130
  Transmission Date: 20080703
  Serious: Yes (Other)
  Sender: FDA-Public Use
  Company Number: US-BAYER-200713504BCC

PATIENT
  Age: 5 Year
  Sex: Female

DRUGS (1)
  1. ASPIRIN [Suspect]
     Indication: DRUG USE FOR UNKNOWN INDICATION
     Route: 048
     Dates: start: 19840101

REACTIONS (3)
  - ANAPHYLACTIC REACTION [None]
  - EYE SWELLING [None]
  - THROAT TIGHTNESS [None]
